FAERS Safety Report 23490366 (Version 2)
Quarter: 2024Q1

REPORT INFORMATION
  Report Type: Report from Study
  Country: US (occurrence: US)
  Receive Date: 20240206
  Receipt Date: 20240219
  Transmission Date: 20240409
  Serious: Yes (Other)
  Sender: FDA-Public Use
  Company Number: US-TAKEDA-2024TUS007622

PATIENT
  Age: 76 Year
  Sex: Female

DRUGS (4)
  1. MOBOCERTINIB [Suspect]
     Active Substance: MOBOCERTINIB
     Indication: Lung neoplasm malignant
     Dosage: 80 MILLIGRAM, QD
     Route: 048
     Dates: start: 202201
  2. MOBOCERTINIB [Suspect]
     Active Substance: MOBOCERTINIB
     Dosage: 80 MILLIGRAM, QD
     Route: 048
     Dates: start: 20240125
  3. MOBOCERTINIB [Suspect]
     Active Substance: MOBOCERTINIB
     Dosage: 80 MILLIGRAM
     Route: 065
     Dates: start: 202402
  4. LORATADINE [Concomitant]
     Active Substance: LORATADINE
     Dosage: UNK
     Route: 065

REACTIONS (15)
  - Lung neoplasm malignant [Unknown]
  - Epistaxis [Unknown]
  - Lacrimation increased [Recovered/Resolved]
  - Chest pain [Unknown]
  - Dyspepsia [Unknown]
  - Pain in extremity [Recovered/Resolved]
  - Pruritus [Unknown]
  - Diarrhoea [Unknown]
  - Rhinorrhoea [Unknown]
  - Eye pruritus [Unknown]
  - Onychoclasis [Unknown]
  - Carcinoembryonic antigen increased [Unknown]
  - Erythema [Unknown]
  - Dry skin [Unknown]
  - Product dose omission issue [Unknown]

NARRATIVE: CASE EVENT DATE: 20240101
